FAERS Safety Report 14145782 (Version 2)
Quarter: 2017Q4

REPORT INFORMATION
  Report Type: Other
  Country: FR (occurrence: FR)
  Receive Date: 20171031
  Receipt Date: 20171129
  Transmission Date: 20180321
  Serious: Yes (Hospitalization)
  Sender: FDA-Public Use
  Company Number: FR-GEHC-2017CSU003424

PATIENT

DRUGS (1)
  1. VISIPAQUE [Suspect]
     Active Substance: IODIXANOL
     Indication: VASCULAR STENT STENOSIS
     Dosage: UNK, SINGLE
     Route: 042
     Dates: start: 20170928, end: 20170928

REACTIONS (2)
  - Eosinophilia [Unknown]
  - Rash [Recovered/Resolved]

NARRATIVE: CASE EVENT DATE: 20171001
